FAERS Safety Report 17860504 (Version 1)
Quarter: 2020Q2

REPORT INFORMATION
  Report Type: Spontaneous
  Country: US (occurrence: US)
  Receive Date: 20200604
  Receipt Date: 20200604
  Transmission Date: 20200714
  Serious: No
  Sender: FDA-Public Use
  Company Number: US-IGSA-SR10009968

PATIENT
  Age: 62 Year
  Sex: Female

DRUGS (27)
  1. GAMUNEX-C [Suspect]
     Active Substance: HUMAN IMMUNOGLOBULIN G
     Dosage: 7 G, Q.10D.
     Route: 058
  2. PREDNISONE. [Concomitant]
     Active Substance: PREDNISONE
     Dosage: 20 MG, UNKNOWN
     Route: 048
  3. POTASSIUM CHLORIDE. [Concomitant]
     Active Substance: POTASSIUM CHLORIDE
     Dosage: UNK UNK, UNKNOWN
     Route: 048
  4. PROMETHAZINE HCL [Concomitant]
     Active Substance: PROMETHAZINE HYDROCHLORIDE
     Dosage: UNK UNK, UNKNOWN
     Route: 048
  5. PHENTERMINE. [Concomitant]
     Active Substance: PHENTERMINE
     Dosage: 37.5 MG, UNK
  6. GAMUNEX-C [Suspect]
     Active Substance: HUMAN IMMUNOGLOBULIN G
     Indication: IMMUNODEFICIENCY
     Dosage: 7 G, Q.WK.
     Route: 058
     Dates: start: 20200218
  7. AFRIN NATURAL [Concomitant]
     Dosage: UNK UNK, UNKNOWN
     Route: 045
  8. ALBUTEROL SULFATE. [Concomitant]
     Active Substance: ALBUTEROL SULFATE
     Dosage: UNK UNK, UNKNOWN
     Route: 055
  9. BUDESONIDE. [Concomitant]
     Active Substance: BUDESONIDE
     Dosage: UNK UNK, UNKNOWN
     Route: 055
  10. ERYTHROMYCIN. [Concomitant]
     Active Substance: ERYTHROMYCIN
     Dosage: UNK UNK, UNKNOWN
     Route: 048
  11. GAMUNEX-C [Suspect]
     Active Substance: HUMAN IMMUNOGLOBULIN G
     Dosage: 7 G, Q.WK.
     Route: 058
     Dates: start: 202003
  12. SPORANOX [Concomitant]
     Active Substance: ITRACONAZOLE
     Dosage: 100 MG, UNKNOWN
     Route: 048
  13. LEVOTHYROXINE SODIUM. [Concomitant]
     Active Substance: LEVOTHYROXINE SODIUM
     Dosage: UNK UNK, UNKNOWN
     Route: 048
  14. WELLBUTRIN [Concomitant]
     Active Substance: BUPROPION HYDROCHLORIDE
     Dosage: 150 ?G, UNKNOWN
     Route: 048
  15. GAMUNEX-C [Suspect]
     Active Substance: HUMAN IMMUNOGLOBULIN G
     Dosage: 7 G, Q.WK.
     Route: 058
     Dates: start: 201907
  16. NASACORT ALLERGY 24HR [Concomitant]
     Active Substance: TRIAMCINOLONE ACETONIDE
     Dosage: UNK UNK, UNKNOWN
  17. ALBUTEROL W/IPRATROPIUM [Concomitant]
     Active Substance: ALBUTEROL\IPRATROPIUM
     Dosage: UNK UNK, UNKNOWN
     Route: 055
  18. SYNTHROID [Concomitant]
     Active Substance: LEVOTHYROXINE SODIUM
     Dosage: 137 ?G, UNKNOWN
     Route: 048
  19. PLAQUENIL                          /00072602/ [Concomitant]
     Active Substance: HYDROXYCHLOROQUINE DIPHOSPHATE
     Dosage: 200 MG, UNK
  20. TESSALON [Concomitant]
     Active Substance: BENZONATATE
     Dosage: 100 MG, UNKNOWN
     Route: 048
  21. ZOMEGOAL [Concomitant]
     Route: 055
  22. PEPCID                             /00305201/ [Concomitant]
     Active Substance: ALUMINUM HYDROXIDE\MAGNESIUM CARBONATE
     Indication: GASTROOESOPHAGEAL REFLUX DISEASE
  23. LEVAQUIN [Concomitant]
     Active Substance: LEVOFLOXACIN
     Dosage: 750 MG, UNKNOWN
     Route: 048
  24. PROVENTIL HFA [Concomitant]
     Active Substance: ALBUTEROL SULFATE
     Dosage: UNK UNK, UNKNOWN
     Route: 055
  25. CHOLECALCIFEROL [Concomitant]
     Active Substance: CHOLECALCIFEROL
     Dosage: UNK UNK, UNKNOWN
     Route: 048
  26. CYCLOSPORINE. [Concomitant]
     Active Substance: CYCLOSPORINE
     Dosage: UNK UNK, UNKNOWN
     Route: 048
  27. LOTEPREDNOL [Concomitant]
     Active Substance: LOTEPREDNOL
     Route: 047

REACTIONS (27)
  - Hyperhidrosis [Unknown]
  - Autoimmune thyroiditis [Recovered/Resolved]
  - Cough [Unknown]
  - Dyspnoea [Unknown]
  - Paraesthesia oral [Unknown]
  - Mast cell activation syndrome [Unknown]
  - Iritis [Recovered/Resolved]
  - Nausea [Unknown]
  - Gastrooesophageal reflux disease [Unknown]
  - Fatigue [Unknown]
  - Blindness transient [Recovered/Resolved]
  - Dizziness [Unknown]
  - Tri-iodothyronine decreased [Recovered/Resolved]
  - Oropharyngeal pain [Unknown]
  - Gait inability [Recovered/Resolved]
  - Disorientation [Recovered/Resolved]
  - Diarrhoea [Unknown]
  - Epistaxis [Unknown]
  - Malaise [Unknown]
  - Infusion site irritation [Unknown]
  - Headache [Unknown]
  - Red blood cell count increased [Unknown]
  - Ocular hyperaemia [Recovered/Resolved]
  - Bronchitis [Unknown]
  - Axillary pain [Unknown]
  - Sinusitis [Unknown]
  - Pain [Unknown]

NARRATIVE: CASE EVENT DATE: 20200218
